FAERS Safety Report 7261832-8 (Version None)
Quarter: 2011Q1

REPORT INFORMATION
  Report Type: 
  Country: None (occurrence: None)
  Receive Date: 20110130
  Receipt Date: 20101210
  Transmission Date: 20110831
  Serious: No
  Sender: FDA-Public Use
  Company Number: US-ABBOTT-10P-163-0690864-00

PATIENT
  Age: 77 Year
  Sex: Male

DRUGS (6)
  1. HUMIRA [Suspect]
     Indication: PSORIASIS
     Dates: start: 20100830, end: 20101201
  2. UNKNOWN MEDICATION [Concomitant]
  3. SLEEPING PILL [Concomitant]
     Indication: PRODUCT USED FOR UNKNOWN INDICATION
     Dosage: AT NIGHT
  4. ASPIRIN [Concomitant]
     Indication: PRODUCT USED FOR UNKNOWN INDICATION
     Route: 048
  5. UNKNOWN MEDICATION [Concomitant]
     Indication: HYPERTENSION
  6. UNKNOWN MEDICATION [Concomitant]

REACTIONS (2)
  - PSORIASIS [None]
  - DRUG INEFFECTIVE [None]
